FAERS Safety Report 11594893 (Version 2)
Quarter: 2015Q4

REPORT INFORMATION
  Report Type: Report from Study
  Country: US (occurrence: US)
  Receive Date: 20151005
  Receipt Date: 20151020
  Transmission Date: 20160304
  Serious: Yes (Other)
  Sender: FDA-Public Use
  Company Number: US-CONCORDIA PHARMACEUTICALS INC.-CO-PL-US-2015-288

PATIENT
  Age: 66 Year
  Sex: Female

DRUGS (1)
  1. HYDROXYCHLOROQUINE SULFATE. [Suspect]
     Active Substance: HYDROXYCHLOROQUINE SULFATE
     Indication: LUNG ADENOCARCINOMA

REACTIONS (5)
  - Retinal toxicity [Unknown]
  - Retinogram abnormal [Unknown]
  - Product use issue [Unknown]
  - Optical coherence tomography abnormal [Unknown]
  - Dry mouth [Unknown]
